FAERS Safety Report 9473353 (Version 1)
Quarter: 2013Q3

REPORT INFORMATION
  Report Type: Spontaneous
  Country: US (occurrence: US)
  Receive Date: 20130823
  Receipt Date: 20130823
  Transmission Date: 20140515
  Serious: No
  Sender: FDA-Public Use
  Company Number: US-BRISTOL-MYERS SQUIBB COMPANY-18915264

PATIENT
  Age: 58 Year
  Sex: Male

DRUGS (1)
  1. SPRYCEL [Suspect]
     Dosage: TABLET.
     Route: 048

REACTIONS (3)
  - Myalgia [Unknown]
  - Painful respiration [Unknown]
  - Head discomfort [Unknown]
